FAERS Safety Report 4498968-0 (Version None)
Quarter: 2004Q4

REPORT INFORMATION
  Report Type: 
  Country: None (occurrence: None)
  Receive Date: 20041108
  Receipt Date: 20041028
  Transmission Date: 20050328
  Serious: Yes (Other)
  Sender: FDA-Public Use
  Company Number: 2004085912

PATIENT
  Age: 37 Year
  Sex: Male
  Weight: 90.7194 kg

DRUGS (4)
  1. NEURONTIN [Suspect]
     Indication: PARTIAL SEIZURES
     Dosage: 2400 MG (600 MG, 4 IN 1 D) ORAL
     Route: 048
     Dates: start: 20010101
  2. METOCLOPRAMIDE [Concomitant]
  3. BUDESONIDE (BUDESONIDE) [Concomitant]
  4. FEXOFENADINE HYDROCHLORIDE [Concomitant]

REACTIONS (3)
  - PARTIAL SEIZURES [None]
  - PHARMACEUTICAL PRODUCT COMPLAINT [None]
  - VOMITING [None]
